FAERS Safety Report 7901097-4 (Version None)
Quarter: 2011Q4

REPORT INFORMATION
  Report Type: 
  Country: None (occurrence: None)
  Receive Date: 20111108
  Receipt Date: 20111102
  Transmission Date: 20120403
  Serious: Yes (Other)
  Sender: FDA-Public Use
  Company Number: US-TEVA-255074USA

PATIENT
  Sex: Female
  Weight: 59.02 kg

DRUGS (2)
  1. ONDANSETRON [Concomitant]
     Indication: VOMITING
     Dates: start: 20110220, end: 20110220
  2. CLARAVIS [Suspect]
     Dosage: 80 MILLIGRAM;
     Dates: start: 20100601, end: 20101029

REACTIONS (1)
  - UNINTENDED PREGNANCY [None]
